FAERS Safety Report 9499467 (Version 1)
Quarter: 2013Q3

REPORT INFORMATION
  Report Type: Spontaneous
  Country: AU (occurrence: None)
  Receive Date: 20130903
  Receipt Date: 20130903
  Transmission Date: 20140515
  Serious: Yes (Hospitalization)
  Sender: FDA-Public Use
  Company Number: 1872925

PATIENT
  Age: 43 Year
  Sex: Male

DRUGS (11)
  1. CALCIUM FOLINATE [Suspect]
     Indication: COLORECTAL CANCER METASTATIC
     Route: 042
     Dates: start: 20120801
  2. OXALIPLATIN [Suspect]
     Indication: COLORECTAL CANCER METASTATIC
     Route: 042
     Dates: start: 20120801
  3. FLUOROURACIL [Suspect]
     Indication: COLORECTAL CANCER METASTATIC
     Route: 040
     Dates: start: 20120801
  4. INVESTIGATIONAL DRUG [Concomitant]
  5. BEVACIZUMAB [Concomitant]
  6. METOCLOPRAMIDE [Concomitant]
  7. HYDROCORTISONE [Concomitant]
  8. PROMETHAZINE HYDROCHLORIDE [Concomitant]
  9. OXYCODONE HYDROCHLORIDE [Concomitant]
  10. DEXAMETHASONE [Concomitant]
  11. PALONOSETRON [Concomitant]

REACTIONS (8)
  - Nausea [None]
  - Rash pruritic [None]
  - Body temperature increased [None]
  - Infusion related reaction [None]
  - Chills [None]
  - Rash macular [None]
  - Rash erythematous [None]
  - Metastases to liver [None]
